FAERS Safety Report 10952304 (Version 2)
Quarter: 2017Q3

REPORT INFORMATION
  Report Type: Spontaneous
  Country: DE (occurrence: DE)
  Receive Date: 20150325
  Receipt Date: 20170915
  Transmission Date: 20171127
  Serious: Yes (Hospitalization, Other)
  Sender: FDA-Public Use
  Company Number: DE-AMGEN-DEUSP2015027305

PATIENT
  Sex: Female

DRUGS (23)
  1. RITUXIMAB. [Suspect]
     Active Substance: RITUXIMAB
     Indication: B-CELL LYMPHOMA
     Dosage: 655 MG, UNK
     Route: 042
     Dates: start: 20131227
  2. DOXORUBICIN [Suspect]
     Active Substance: DOXORUBICIN
     Indication: B-CELL LYMPHOMA
     Dosage: 86.5 MG, Q2WK
     Route: 042
     Dates: start: 20140101, end: 20140410
  3. SULFAMETHOXAZOLE W/TRIMETHOPRIM [Concomitant]
     Active Substance: SULFAMETHOXAZOLE\TRIMETHOPRIM
     Indication: INFECTION
     Dosage: 960 MG, MON, WED , FRI 3 IN 1 WK
     Route: 048
     Dates: start: 20131217
  4. FLUCONAZOLE. [Concomitant]
     Active Substance: FLUCONAZOLE
     Dosage: 1000 MG, QD (1 IN 1 D)
     Route: 048
     Dates: start: 20131227
  5. CIPROFLOXACINE [Concomitant]
     Active Substance: CIPROFLOXACIN
     Dosage: 1000 MG, QD (1 IN 1 D)
     Route: 048
     Dates: start: 20140114
  6. AMPHOTERICIN B. [Concomitant]
     Active Substance: AMPHOTERICIN B
     Indication: PROPHYLACTIC CHEMOTHERAPY
     Dosage: 0.25 FL, AS NECESSARY
     Route: 048
  7. TRIMETHOPRIM SULFA [Concomitant]
     Active Substance: TRIMETHOPRIM SULFATE
     Indication: INFECTION
     Dosage: 960 MG, UNK
     Route: 048
  8. PEGFILGRASTIM [Suspect]
     Active Substance: PEGFILGRASTIM
     Indication: B-CELL LYMPHOMA
     Dosage: 6 MG, Q2WK
     Route: 058
     Dates: start: 20140104, end: 20140413
  9. PREDNISONE. [Suspect]
     Active Substance: PREDNISONE
     Indication: B-CELL LYMPHOMA
     Dosage: 100 MG, 5 IN 14 D
     Route: 048
     Dates: start: 20131220, end: 20140414
  10. KALIUMJODID [Concomitant]
     Dosage: 200 MUG, QD (1 IN 1 D)
     Route: 048
     Dates: start: 20131217
  11. METOPROLOL SUCCINATE. [Concomitant]
     Active Substance: METOPROLOL SUCCINATE
     Indication: HYPERTENSION
     Dosage: 47.5 MG, BID (2 IN 1 D)
     Route: 048
  12. ENOXAPARIN SODIUM. [Concomitant]
     Active Substance: ENOXAPARIN SODIUM
     Dosage: 6 ML, BID (2 IN 1 D)
     Route: 048
     Dates: start: 20131217
  13. PANTOPRAZOLE SODIUM. [Concomitant]
     Active Substance: PANTOPRAZOLE SODIUM
     Dosage: 40 MG, QD (1 IN 1 D)
     Route: 048
     Dates: start: 20131217
  14. COLECALCIFEROL [Concomitant]
     Active Substance: CHOLECALCIFEROL
     Indication: VITAMIN D DEFICIENCY
     Dosage: 2000 IU, QWK (1 IN 1 WK)
     Route: 048
     Dates: start: 20131227
  15. CIPROFLOXACINE [Concomitant]
     Active Substance: CIPROFLOXACIN
     Dosage: 500 MG, AS NECESSARY
     Route: 048
  16. PANTOPRAZOLE [Concomitant]
     Active Substance: PANTOPRAZOLE
     Dosage: 40 MG, QD (1 IN 1 D)
  17. CYCLOPHOSPHAMIDE. [Suspect]
     Active Substance: CYCLOPHOSPHAMIDE
     Indication: B-CELL LYMPHOMA
     Dosage: 1258 MG, Q2WK
     Route: 042
     Dates: start: 20140101, end: 20140410
  18. VINCRISTINE [Suspect]
     Active Substance: VINCRISTINE
     Indication: B-CELL LYMPHOMA
     Dosage: 2 MG, Q2WK
     Route: 042
     Dates: start: 20140101, end: 20140410
  19. OXETACAIN [Concomitant]
     Indication: DYSPEPSIA
     Dosage: UNK UNK, AS NECESSARY
     Route: 048
     Dates: start: 20131227
  20. ACICLOVIR [Concomitant]
     Active Substance: ACYCLOVIR
     Indication: INFECTION
  21. METAMIZOL NATRIUM [Concomitant]
     Dosage: 500 MG, ON DEMAND
     Route: 048
  22. ACICLOVIR [Concomitant]
     Active Substance: ACYCLOVIR
     Indication: PROPHYLACTIC CHEMOTHERAPY
     Dosage: 400 MG, TID (3 IN 1 D)
     Route: 048
  23. ALLOPURINOL. [Concomitant]
     Active Substance: ALLOPURINOL
     Dosage: 300 MG, QD (1 IN 1 D)
     Route: 048
     Dates: start: 20131217

REACTIONS (11)
  - Febrile neutropenia [Unknown]
  - Diarrhoea [Recovered/Resolved]
  - Asthenia [Recovered/Resolved]
  - Nausea [Recovered/Resolved]
  - Vomiting [Unknown]
  - Large intestine perforation [Recovered/Resolved]
  - Abdominal pain [Recovered/Resolved]
  - Dysphagia [Recovered/Resolved]
  - Febrile neutropenia [Recovered/Resolved]
  - Vomiting [Recovered/Resolved]
  - Constipation [Recovered/Resolved]

NARRATIVE: CASE EVENT DATE: 20140124
